FAERS Safety Report 23608785 (Version 1)
Quarter: 2024Q1

REPORT INFORMATION
  Report Type: Spontaneous
  Country: US (occurrence: US)
  Receive Date: 20240308
  Receipt Date: 20240308
  Transmission Date: 20240410
  Serious: Yes (Other)
  Sender: FDA-Public Use
  Company Number: US-CIPLA LTD.-2024US02321

PATIENT

DRUGS (6)
  1. DECITABINE [Suspect]
     Active Substance: DECITABINE
     Indication: Trisomy 21
     Dosage: UNK (ADULT LEUKEMIA CHEMOTHERAPY PROTOCOL)
     Route: 065
  2. DECITABINE [Suspect]
     Active Substance: DECITABINE
     Indication: Acute myeloid leukaemia
  3. CLADRIBINE [Suspect]
     Active Substance: CLADRIBINE
     Indication: Trisomy 21
     Dosage: UNK (ADULT LEUKEMIA CHEMOTHERAPY PROTOCOL)
     Route: 065
  4. CLADRIBINE [Suspect]
     Active Substance: CLADRIBINE
     Indication: Acute myeloid leukaemia
  5. CYTARABINE [Suspect]
     Active Substance: CYTARABINE
     Indication: Trisomy 21
     Dosage: LOW DOSE (ADULT LEUKEMIA CHEMOTHERAPY PROTOCOL)
     Route: 065
  6. CYTARABINE [Suspect]
     Active Substance: CYTARABINE
     Indication: Acute myeloid leukaemia

REACTIONS (2)
  - Thrombosis [Unknown]
  - Febrile neutropenia [Unknown]
